FAERS Safety Report 7562799-5 (Version None)
Quarter: 2011Q2

REPORT INFORMATION
  Report Type: 
  Country: None (occurrence: None)
  Receive Date: 20110621
  Receipt Date: 20110621
  Transmission Date: 20111010
  Serious: Yes (Hospitalization)
  Sender: FDA-Public Use
  Company Number: None

PATIENT
  Sex: Male

DRUGS (6)
  1. RANIBIZUMAB [Suspect]
     Indication: AGE-RELATED MACULAR DEGENERATION
     Dosage: 2.0 MG P.R.N. OPTHALMIC (046) - INTRAVITREAL INJECT.
     Route: 042
     Dates: start: 20110301, end: 20110601
  2. SYNTHROID [Concomitant]
  3. NEURONTIN [Concomitant]
  4. ZIAC [Concomitant]
  5. ASPIRIN [Concomitant]
  6. ZANTAC [Concomitant]

REACTIONS (1)
  - NEPHROLITHIASIS [None]
